FAERS Safety Report 20666937 (Version 1)
Quarter: 2022Q2

REPORT INFORMATION
  Report Type: Report from Study
  Country: IL (occurrence: IL)
  Receive Date: 20220403
  Receipt Date: 20220403
  Transmission Date: 20220721
  Serious: Yes (Death)
  Sender: FDA-Public Use
  Company Number: IL-ABBVIE-22K-082-4341871-00

PATIENT
  Age: 76 Year
  Sex: Female
  Weight: 77 kg

DRUGS (10)
  1. VENETOCLAX [Suspect]
     Active Substance: VENETOCLAX
     Indication: Acute myeloid leukaemia
     Route: 048
     Dates: start: 20200123, end: 20200123
  2. VENETOCLAX [Suspect]
     Active Substance: VENETOCLAX
     Dosage: RAMP UP
     Route: 048
     Dates: start: 20200124, end: 20200124
  3. VENETOCLAX [Suspect]
     Active Substance: VENETOCLAX
     Dosage: THE PATIENT HAD STEM CELL TRANSPLANT SO DRUG WAS DISCONTINUED
     Route: 048
     Dates: start: 20200125, end: 20200520
  4. AZACITIDINE [Suspect]
     Active Substance: AZACITIDINE
     Indication: Acute myeloid leukaemia
     Dosage: CYCLE 1
     Route: 058
     Dates: start: 20200123, end: 20200129
  5. AZACITIDINE [Suspect]
     Active Substance: AZACITIDINE
     Dosage: CYCLE 2
     Route: 058
     Dates: start: 20200216, end: 20200224
  6. AZACITIDINE [Suspect]
     Active Substance: AZACITIDINE
     Dosage: CYCLE 3
     Route: 058
     Dates: start: 20200315, end: 20200323
  7. AZACITIDINE [Suspect]
     Active Substance: AZACITIDINE
     Dosage: CYCLE 4
     Route: 058
     Dates: start: 20200412, end: 20200421
  8. ALLOPURINOL [Concomitant]
     Active Substance: ALLOPURINOL
     Indication: Prophylaxis
     Dates: start: 20081106
  9. ASPIRIN [Concomitant]
     Active Substance: ASPIRIN
     Indication: Product used for unknown indication
     Dates: start: 20160520
  10. UTHYROX [Concomitant]
     Indication: Product used for unknown indication
     Dates: start: 20120614

REACTIONS (2)
  - Disease progression [Fatal]
  - Neutropenia [Recovered/Resolved]

NARRATIVE: CASE EVENT DATE: 20200901
